FAERS Safety Report 25358137 (Version 1)
Quarter: 2025Q2

REPORT INFORMATION
  Report Type: Spontaneous
  Country: US (occurrence: US)
  Receive Date: 20250526
  Receipt Date: 20250526
  Transmission Date: 20250717
  Serious: No
  Sender: ELI LILLY AND COMPANY
  Company Number: US-ELI_LILLY_AND_COMPANY-US202505017239

PATIENT
  Age: 48 Year

DRUGS (1)
  1. INSULIN LISPRO [Suspect]
     Active Substance: INSULIN LISPRO
     Route: 058

REACTIONS (3)
  - Rhinorrhoea [Unknown]
  - Cough [Unknown]
  - Hypersensitivity [Unknown]
